FAERS Safety Report 8791297 (Version 1)
Quarter: 2012Q4

REPORT INFORMATION
  Report Type: Spontaneous
  Country: JP (occurrence: None)
  Receive Date: 20120911
  Receipt Date: 20120911
  Transmission Date: 20130627
  Serious: Yes (Hospitalization, Other)
  Sender: FDA-Public Use
  Company Number: VAL_00821_2012

PATIENT
  Age: 35 Year
  Sex: Female

DRUGS (1)
  1. CARBAMAZEPINE [Suspect]
     Indication: TRIGEMINAL NEURALGIA

REACTIONS (7)
  - Trigeminal neuralgia [None]
  - Condition aggravated [None]
  - Post procedural complication [None]
  - Irritability [None]
  - Conversion disorder [None]
  - Procedural pain [None]
  - Central nervous system lesion [None]
